FAERS Safety Report 15138800 (Version 1)
Quarter: 2018Q3

REPORT INFORMATION
  Report Type: Spontaneous
  Country: FR (occurrence: FR)
  Receive Date: 20180713
  Receipt Date: 20180713
  Transmission Date: 20181010
  Serious: Yes (Hospitalization)
  Sender: FDA-Public Use
  Company Number: FR-ASTRAZENECA-2018SE87661

PATIENT
  Age: 79 Year
  Sex: Female

DRUGS (10)
  1. KARDEGIC [Concomitant]
     Active Substance: ASPIRIN DL-LYSINE
     Dosage: 75.0MG UNKNOWN
  2. KEPPRA [Concomitant]
     Active Substance: LEVETIRACETAM
     Indication: EPILEPSY
     Dosage: 500.0MG UNKNOWN
     Route: 048
  3. FOLIC ACID. [Concomitant]
     Active Substance: FOLIC ACID
     Indication: PRODUCT USED FOR UNKNOWN INDICATION
     Dates: start: 20171024
  4. MINISINTROM [Concomitant]
     Active Substance: ACENOCOUMAROL
     Dosage: 1.25MG UNKNOWN
     Route: 048
  5. LOXEN L P [Suspect]
     Active Substance: NICARDIPINE HYDROCHLORIDE
     Dosage: 50.0MG UNKNOWN
     Route: 048
  6. INEXIUM [Suspect]
     Active Substance: ESOMEPRAZOLE
     Dosage: 20.0MG UNKNOWN
     Route: 048
  7. RIVOTRIL [Concomitant]
     Active Substance: CLONAZEPAM
     Indication: EPILEPSY
     Dosage: 2.0MG UNKNOWN
     Route: 048
  8. CETIRIZINE HYDROCHLORIDE. [Suspect]
     Active Substance: CETIRIZINE HYDROCHLORIDE
     Indication: PRODUCT USED FOR UNKNOWN INDICATION
     Route: 048
     Dates: start: 20171024
  9. CEFTRIAXONE. [Suspect]
     Active Substance: CEFTRIAXONE
     Indication: LUNG INFECTION
     Route: 048
     Dates: start: 20171018, end: 20171021
  10. MOVICOL [Concomitant]
     Active Substance: POLYETHYLENE GLYCOL 3350\POTASSIUM CHLORIDE\SODIUM BICARBONATE\SODIUM CHLORIDE
     Dosage: 1.0DF UNKNOWN
     Route: 048

REACTIONS (1)
  - Acute generalised exanthematous pustulosis [Recovering/Resolving]

NARRATIVE: CASE EVENT DATE: 20171025
